FAERS Safety Report 17283278 (Version 2)
Quarter: 2020Q1

REPORT INFORMATION
  Report Type: Spontaneous
  Country: US (occurrence: US)
  Receive Date: 20200117
  Receipt Date: 20200218
  Transmission Date: 20200409
  Serious: No
  Sender: FDA-Public Use
  Company Number: US-PFIZER INC-2020021401

PATIENT
  Age: 72 Year
  Sex: Female
  Weight: 63 kg

DRUGS (14)
  1. DILTIAZEM. [Concomitant]
     Active Substance: DILTIAZEM
     Dosage: UNK
  2. VITAMIN D3 [Concomitant]
     Active Substance: CHOLECALCIFEROL
     Dosage: UNK
  3. XELJANZ XR [Suspect]
     Active Substance: TOFACITINIB CITRATE
     Indication: RHEUMATOID ARTHRITIS
     Dosage: 11 MG, DAILY
     Route: 048
     Dates: start: 201909, end: 202001
  4. METHOTREXATE. [Concomitant]
     Active Substance: METHOTREXATE
     Dosage: UNK
  5. VALSARTAN. [Concomitant]
     Active Substance: VALSARTAN
     Dosage: UNK
  6. IRON [Concomitant]
     Active Substance: IRON
     Dosage: UNK
  7. ILEVRO [Concomitant]
     Active Substance: NEPAFENAC
     Dosage: UNK
  8. PROLIA [Concomitant]
     Active Substance: DENOSUMAB
     Dosage: UNK
  9. ASPIRIN [ACETYLSALICYLIC ACID] [Concomitant]
     Active Substance: ASPIRIN
     Dosage: 81 MG, UNK
  10. FISH OIL [Concomitant]
     Active Substance: FISH OIL
     Dosage: UNK
  11. VENTOLIN HFA [Concomitant]
     Active Substance: ALBUTEROL SULFATE
     Dosage: UNK
  12. FOLIC ACID. [Concomitant]
     Active Substance: FOLIC ACID
     Dosage: UNK
  13. LEVEMIR [Concomitant]
     Active Substance: INSULIN DETEMIR
     Dosage: UNK
  14. DILT-XR [Concomitant]
     Active Substance: DILTIAZEM
     Dosage: UNK

REACTIONS (4)
  - Cough [Unknown]
  - Rhinorrhoea [Unknown]
  - Nasopharyngitis [Recovered/Resolved]
  - Allergic sinusitis [Unknown]

NARRATIVE: CASE EVENT DATE: 202001
